FAERS Safety Report 4720943-9 (Version None)
Quarter: 2005Q3

REPORT INFORMATION
  Report Type: 
  Country: None (occurrence: None)
  Receive Date: 20050719
  Receipt Date: 20050207
  Transmission Date: 20060218
  Serious: Yes (Hospitalization, Disabling, Other)
  Sender: FDA-Public Use
  Company Number: 2005011665

PATIENT
  Age: 68 Year
  Sex: Male

DRUGS (12)
  1. CELEBREX [Suspect]
     Indication: OSTEOARTHRITIS
     Dosage: 200 MG (100 MG, 2 IN 1 D), ORAL
     Route: 048
     Dates: start: 20000501, end: 20050101
  2. ALLOPURINOL [Concomitant]
  3. LITHIUM CARBONATE [Concomitant]
  4. RISPERIDONE [Concomitant]
  5. QUETIAPINE FUMARATE [Concomitant]
  6. MULTIVITAMINS (ASCORBIC ACID, ERGOCALCIFEROL, FOLIC ACID, NICOTINAMIDE [Concomitant]
  7. PARACETAMOL [Concomitant]
  8. ASPIRIN [Concomitant]
  9. AMLODIPINE BESYLATE [Concomitant]
  10. CALCIUM GLUCONATE [Concomitant]
  11. ALENDRONATE SODIUM [Concomitant]
  12. ASPIRIN [Concomitant]

REACTIONS (2)
  - CEREBROVASCULAR ACCIDENT [None]
  - SHOULDER PAIN [None]
